FAERS Safety Report 23547056 (Version 2)
Quarter: 2024Q1

REPORT INFORMATION
  Report Type: Spontaneous
  Country: US (occurrence: US)
  Receive Date: 20240221
  Receipt Date: 20240328
  Transmission Date: 20240410
  Serious: Yes (Other)
  Sender: FDA-Public Use
  Company Number: US-JNJFOC-20240237334

PATIENT
  Age: 67 Year
  Sex: Female

DRUGS (2)
  1. STELARA [Suspect]
     Active Substance: USTEKINUMAB
     Indication: Crohn^s disease
     Route: 040
     Dates: start: 20231125
  2. STELARA [Suspect]
     Active Substance: USTEKINUMAB
     Route: 058
     Dates: start: 20240126

REACTIONS (12)
  - Kidney infection [Unknown]
  - Crohn^s disease [Unknown]
  - Arthralgia [Unknown]
  - Influenza like illness [Unknown]
  - Nausea [Unknown]
  - Urinary tract infection [Unknown]
  - Oedema [Unknown]
  - Weight increased [Unknown]
  - Blood pressure increased [Unknown]
  - Decreased immune responsiveness [Unknown]
  - Drug ineffective [Unknown]
  - Product dose omission issue [Unknown]
